FAERS Safety Report 11883469 (Version 2)
Quarter: 2016Q1

REPORT INFORMATION
  Report Type: Report from Study
  Country: CN (occurrence: CN)
  Receive Date: 20151231
  Receipt Date: 20160104
  Transmission Date: 20160526
  Serious: Yes (Other)
  Sender: FDA-Public Use
  Company Number: PHHY2015CN170305

PATIENT
  Age: 34 Year
  Sex: Male

DRUGS (35)
  1. METHYLPREDNISOLONE. [Suspect]
     Active Substance: METHYLPREDNISOLONE
     Dosage: 280 MG, QD
     Route: 065
     Dates: start: 20150904, end: 20150905
  2. BASILIXIMAB [Suspect]
     Active Substance: BASILIXIMAB
     Dosage: 20 MG, QD
     Route: 065
     Dates: start: 20150905, end: 20150905
  3. METHYLPREDNISOLONE. [Suspect]
     Active Substance: METHYLPREDNISOLONE
     Dosage: 40 MG, QD
     Route: 065
     Dates: start: 20150905, end: 20150908
  4. HEPATITIS B IMMUNE GLOBULIN [Concomitant]
     Active Substance: HUMAN HEPATITIS B VIRUS IMMUNE GLOBULIN
     Indication: ANTIVIRAL PROPHYLAXIS
     Dosage: 400 IU, QD
     Route: 030
     Dates: start: 20150903, end: 20150903
  5. SODIUM CHLORIDE. [Concomitant]
     Active Substance: SODIUM CHLORIDE
     Indication: PROPHYLAXIS
     Dosage: 12 ML, QD
     Route: 042
     Dates: start: 20150901, end: 20150902
  6. MANITOL [Concomitant]
     Indication: PROPHYLAXIS
     Dosage: 125 ML, UNK
     Route: 042
     Dates: start: 20150901, end: 20150901
  7. ALPON//ALPRAZOLAM [Concomitant]
     Indication: SEDATION
     Dosage: 0.4 MG, QD
     Route: 048
     Dates: start: 20150902, end: 20150908
  8. DILTIAZEM [Concomitant]
     Active Substance: DILTIAZEM
     Indication: HYPERTENSION
     Dosage: 30 MG, BID
     Route: 048
     Dates: start: 20150902
  9. FUROSEMIDE. [Concomitant]
     Active Substance: FUROSEMIDE
     Indication: PROPHYLAXIS
     Dosage: 80 MG, UNK
     Route: 042
     Dates: start: 20150901, end: 20150901
  10. MYFORTIC [Suspect]
     Active Substance: MYCOPHENOLATE SODIUM
     Indication: RENAL TRANSPLANT
     Dosage: 1440 MG, QD
     Route: 065
     Dates: start: 20150901, end: 20150908
  11. AMIKACIN [Concomitant]
     Active Substance: AMIKACIN
     Indication: INFECTION PROPHYLAXIS
     Dosage: 400 MG, QD
     Route: 042
     Dates: start: 20150901, end: 20150901
  12. MACROGOL 4000 [Concomitant]
     Active Substance: POLYETHYLENE GLYCOL 4000
     Indication: CONSTIPATION PROPHYLAXIS
     Dosage: 10 G, TID
     Route: 048
     Dates: start: 20150909
  13. TEICOPLANIN [Concomitant]
     Active Substance: TEICOPLANIN
     Indication: INFECTION PROPHYLAXIS
     Dosage: 200 MG, QD
     Route: 042
     Dates: start: 20150902, end: 20150908
  14. METOCLOPRAMIDE. [Concomitant]
     Active Substance: METOCLOPRAMIDE
     Indication: VOMITING
     Dosage: 10 MG, QD
     Route: 030
     Dates: start: 20150903, end: 20150903
  15. SODIUM BICARBONATE. [Concomitant]
     Active Substance: SODIUM BICARBONATE
     Indication: PROPHYLAXIS AGAINST GASTROINTESTINAL ULCER
     Dosage: 1000 MG, BID
     Route: 048
     Dates: start: 20150909
  16. MYFORTIC [Suspect]
     Active Substance: MYCOPHENOLATE SODIUM
     Dosage: 1080 MG, QD
     Route: 065
     Dates: start: 20150908
  17. BASILIXIMAB [Suspect]
     Active Substance: BASILIXIMAB
     Indication: PRODUCT USED FOR UNKNOWN INDICATION
     Dosage: 20 MG, QD
     Route: 065
     Dates: start: 20150901, end: 20150901
  18. METHYLPREDNISOLONE. [Suspect]
     Active Substance: METHYLPREDNISOLONE
     Dosage: 540 MG, QD
     Route: 065
     Dates: start: 20150902, end: 20150903
  19. MAGNES SULF [Concomitant]
     Indication: PROPHYLAXIS
     Dosage: 3.2 ML, QD
     Route: 042
     Dates: start: 20150901, end: 20150902
  20. OMEPRAZOLE. [Concomitant]
     Active Substance: OMEPRAZOLE
     Indication: PROPHYLAXIS AGAINST GASTROINTESTINAL ULCER
     Dosage: 40 MG, QD
     Route: 042
     Dates: start: 20150902, end: 20150908
  21. DIAZEPAM. [Concomitant]
     Active Substance: DIAZEPAM
     Indication: PROPHYLAXIS
     Dosage: 5 MG, UNK
     Route: 048
     Dates: start: 20150901, end: 20150901
  22. METHYLPREDNISOLONE. [Suspect]
     Active Substance: METHYLPREDNISOLONE
     Indication: PRODUCT USED FOR UNKNOWN INDICATION
     Dosage: 700 MG, QD
     Route: 065
     Dates: start: 20150901, end: 20150902
  23. SODIUM BICARBONATE. [Concomitant]
     Active Substance: SODIUM BICARBONATE
     Indication: PREVENTIVE SURGERY
     Dosage: 250 ML, QD
     Route: 042
     Dates: start: 20150901, end: 20150902
  24. FUROSEMIDE. [Concomitant]
     Active Substance: FUROSEMIDE
     Indication: DIURETIC THERAPY
     Dosage: 40 MG, QD
     Route: 042
     Dates: start: 20150906, end: 20150906
  25. SULPHAMETHOXAZOLE [Concomitant]
     Active Substance: SULFAMETHOXAZOLE
     Indication: INFECTION PROPHYLAXIS
     Dosage: 240 MG, QD
     Route: 048
     Dates: start: 20150909
  26. PREDNISONE. [Suspect]
     Active Substance: PREDNISONE
     Indication: PRODUCT USED FOR UNKNOWN INDICATION
     Dosage: 20 MG, QD
     Route: 065
     Dates: start: 20150909
  27. TALCID [Concomitant]
     Active Substance: HYDROTALCITE
     Indication: PROPHYLAXIS AGAINST GASTROINTESTINAL ULCER
     Dosage: 1000 MG, QD
     Route: 048
     Dates: start: 20150909
  28. CASPOFUNGIN ACETATE [Concomitant]
     Active Substance: CASPOFUNGIN ACETATE
     Indication: INFECTION PROPHYLAXIS
     Dosage: 50 MG, QD
     Route: 042
     Dates: start: 20150901, end: 20150908
  29. SUCRALFATE. [Concomitant]
     Active Substance: SUCRALFATE
     Indication: PROPHYLAXIS AGAINST GASTROINTESTINAL ULCER
     Dosage: 750 MG, QD
     Route: 048
     Dates: start: 20150901, end: 20150901
  30. IMIPENEM / CILASTATINA [Concomitant]
     Indication: INFECTION PROPHYLAXIS
     Dosage: 500 MG, Q8H
     Route: 042
     Dates: start: 20150901, end: 20150908
  31. CALCIPOT//CALCIUM GLUCONATE [Concomitant]
     Indication: ELECTROLYTE IMBALANCE
     Dosage: 3 G, QD
     Route: 042
     Dates: start: 20150902, end: 20150903
  32. TACROLIMUS. [Suspect]
     Active Substance: TACROLIMUS
     Indication: PRODUCT USED FOR UNKNOWN INDICATION
     Dosage: 7 MG, QD
     Route: 065
     Dates: start: 20150902
  33. GANCICLOVIR. [Concomitant]
     Active Substance: GANCICLOVIR
     Indication: INFECTION PROPHYLAXIS
     Dosage: 500 MG, TID
     Route: 048
     Dates: start: 20150909
  34. HEPARIN SODIUM. [Concomitant]
     Active Substance: HEPARIN SODIUM
     Indication: THROMBOSIS PROPHYLAXIS
     Dosage: 12500 IU, QD
     Route: 048
     Dates: start: 20150903, end: 20150908
  35. INSULIN [Concomitant]
     Active Substance: INSULIN NOS
     Indication: PROPHYLAXIS
     Dosage: 12 IU, QD
     Route: 042
     Dates: start: 20150901, end: 20150902

REACTIONS (8)
  - Lymphocyte count decreased [Unknown]
  - Urine analysis abnormal [Unknown]
  - Blood urea increased [Unknown]
  - Wound complication [Recovering/Resolving]
  - White blood cell count increased [Unknown]
  - Blood creatinine increased [Unknown]
  - Neutrophil count increased [Unknown]
  - Haemoglobin decreased [Unknown]

NARRATIVE: CASE EVENT DATE: 20150902
